FAERS Safety Report 7970870-9 (Version None)
Quarter: 2011Q4

REPORT INFORMATION
  Report Type: 
  Country: None (occurrence: None)
  Receive Date: 20111212
  Receipt Date: 20111130
  Transmission Date: 20120403
  Serious: Yes (Other)
  Sender: FDA-Public Use
  Company Number: GB-GLAXOSMITHKLINE-B0766758A

PATIENT
  Age: 57 Year
  Sex: Female

DRUGS (3)
  1. FLUTICASONE PROPIONATE/SALMETEROL [Suspect]
     Indication: BRONCHIECTASIS
     Dosage: 2PUFF TWICE PER DAY
     Route: 055
  2. WARFARIN SODIUM [Concomitant]
  3. UNKNOWN [Concomitant]
     Route: 055

REACTIONS (16)
  - WHEEZING [None]
  - PNEUMONIA [None]
  - COUGH [None]
  - BLOOD COUNT ABNORMAL [None]
  - BODY HEIGHT DECREASED [None]
  - DYSPNOEA [None]
  - BACK PAIN [None]
  - NOSOCOMIAL INFECTION [None]
  - ORAL CANDIDIASIS [None]
  - DYSPNOEA EXERTIONAL [None]
  - OSTEOPOROSIS [None]
  - DRY MOUTH [None]
  - ASTHMA [None]
  - EXERCISE TOLERANCE DECREASED [None]
  - BREATH SOUNDS ABNORMAL [None]
  - LOWER RESPIRATORY TRACT INFECTION [None]
